FAERS Safety Report 24872694 (Version 2)
Quarter: 2025Q4

REPORT INFORMATION
  Report Type: Spontaneous
  Country: US (occurrence: US)
  Receive Date: 20250122
  Receipt Date: 20251114
  Transmission Date: 20260118
  Serious: No
  Sender: SUNOVION
  Company Number: US-SMPA-2025SPA000281AA

PATIENT
  Sex: Male

DRUGS (1)
  1. GEMTESA [Suspect]
     Active Substance: VIBEGRON
     Route: 048

REACTIONS (1)
  - Rash erythematous [Unknown]
